FAERS Safety Report 17834162 (Version 1)
Quarter: 2020Q2

REPORT INFORMATION
  Report Type: Spontaneous
  Country: US (occurrence: US)
  Receive Date: 20200528
  Receipt Date: 20200528
  Transmission Date: 20200714
  Serious: Yes (Hospitalization)
  Sender: FDA-Public Use
  Company Number: None

PATIENT
  Age: 75 Year
  Sex: Female

DRUGS (13)
  1. BACTRIM DS [Concomitant]
     Active Substance: SULFAMETHOXAZOLE\TRIMETHOPRIM
     Dates: start: 20200423
  2. FOLIC ACID. [Concomitant]
     Active Substance: FOLIC ACID
     Dates: start: 20200423
  3. TRAVATAN Z [Concomitant]
     Active Substance: TRAVOPROST
     Dates: start: 20200423
  4. VITAMIN D3 [Concomitant]
     Active Substance: CHOLECALCIFEROL
     Dates: start: 20200423
  5. ARAVA [Concomitant]
     Active Substance: LEFLUNOMIDE
     Dates: start: 20200423
  6. PREDNISONE. [Concomitant]
     Active Substance: PREDNISONE
     Dates: start: 20200423
  7. LEVOTHYROXINE. [Concomitant]
     Active Substance: LEVOTHYROXINE
     Dates: start: 20200423
  8. METHOTREXATE. [Concomitant]
     Active Substance: METHOTREXATE
     Dates: start: 20200423
  9. MORPHINE [Concomitant]
     Active Substance: MORPHINE
     Dates: start: 20200423
  10. LIDOCIANE GEL [Concomitant]
     Dates: start: 20200423
  11. XELJANZ XR [Suspect]
     Active Substance: TOFACITINIB CITRATE
     Indication: ARTHRITIS
     Route: 048
     Dates: start: 20190715
  12. DICLOFENAC GEL [Concomitant]
     Active Substance: DICLOFENAC
     Dates: start: 20200423
  13. SERTRALINE [Concomitant]
     Active Substance: SERTRALINE HYDROCHLORIDE
     Dates: start: 20200423

REACTIONS (2)
  - Rib fracture [None]
  - Fall [None]

NARRATIVE: CASE EVENT DATE: 20200516
